FAERS Safety Report 13929960 (Version 1)
Quarter: 2017Q3

REPORT INFORMATION
  Report Type: Spontaneous
  Country: MX (occurrence: MX)
  Receive Date: 20170901
  Receipt Date: 20170901
  Transmission Date: 20171127
  Serious: Yes (Other)
  Sender: FDA-Public Use
  Company Number: MX-PFIZER INC-2017379937

PATIENT
  Age: 47 Year
  Sex: Female

DRUGS (1)
  1. ADVIL [Suspect]
     Active Substance: IBUPROFEN
     Dosage: 400 MG, UNK
     Dates: start: 20170829, end: 201708

REACTIONS (6)
  - Pruritus generalised [Recovering/Resolving]
  - Eye pruritus [Recovering/Resolving]
  - Throat tightness [Recovering/Resolving]
  - Tongue disorder [Recovering/Resolving]
  - Swelling face [Recovering/Resolving]
  - Poisoning [Recovering/Resolving]

NARRATIVE: CASE EVENT DATE: 201708
